FAERS Safety Report 21663700 (Version 1)
Quarter: 2022Q4

REPORT INFORMATION
  Report Type: Spontaneous
  Country: US (occurrence: None)
  Receive Date: 20221129
  Receipt Date: 20221129
  Transmission Date: 20230113
  Serious: Yes (unspecified)
  Sender: FDA-Public Use
  Company Number: None

PATIENT
  Age: 62 Year
  Sex: Male

DRUGS (4)
  1. TESTOSTERONE CYPIONATE [Suspect]
     Active Substance: TESTOSTERONE CYPIONATE
     Indication: Hypogonadism
     Route: 058
     Dates: start: 20220504, end: 20220818
  2. Tadalafil SR 7mg Capsule [Concomitant]
     Dates: start: 20220504
  3. Anastrozole 0.25 mg Tablet [Concomitant]
     Dates: start: 20220808
  4. Enclomiphene Citrate 12.5mg Capsule [Concomitant]
     Dates: start: 20220601

REACTIONS (2)
  - Skin weeping [None]
  - Skin lesion [None]

NARRATIVE: CASE EVENT DATE: 20220818
